FAERS Safety Report 25619618 (Version 2)
Quarter: 2025Q3

REPORT INFORMATION
  Report Type: Spontaneous
  Country: JP (occurrence: JP)
  Receive Date: 20250729
  Receipt Date: 20250828
  Transmission Date: 20251020
  Serious: Yes (Hospitalization, Other)
  Sender: TAKEDA
  Company Number: JP-TAKEDA-2025TJP007023

PATIENT
  Age: 26 Year
  Sex: Female

DRUGS (1)
  1. INTUNIV [Suspect]
     Active Substance: GUANFACINE HYDROCHLORIDE
     Indication: Attention deficit hyperactivity disorder

REACTIONS (3)
  - Pancreatitis [Recovered/Resolved]
  - Heart rate decreased [Recovered/Resolved]
  - Overdose [Recovered/Resolved]
